FAERS Safety Report 22945861 (Version 2)
Quarter: 2023Q4

REPORT INFORMATION
  Report Type: Report from Study
  Country: JP (occurrence: JP)
  Receive Date: 20230914
  Receipt Date: 20231209
  Transmission Date: 20240109
  Serious: Yes (Hospitalization, Other)
  Sender: FDA-Public Use
  Company Number: JP-ELI_LILLY_AND_COMPANY-JP202309004386

PATIENT
  Age: 94 Year
  Sex: Female
  Weight: 49.8 kg

DRUGS (1)
  1. EVISTA [Suspect]
     Active Substance: RALOXIFENE HYDROCHLORIDE
     Indication: Osteoporosis
     Route: 048

REACTIONS (4)
  - Femoral neck fracture [Unknown]
  - Fall [Unknown]
  - Deep vein thrombosis [Recovered/Resolved]
  - Off label use [Unknown]
